FAERS Safety Report 18533240 (Version 2)
Quarter: 2020Q4

REPORT INFORMATION
  Report Type: Spontaneous
  Country: JP (occurrence: JP)
  Receive Date: 20201123
  Receipt Date: 20201128
  Transmission Date: 20210114
  Serious: Yes (Death, Hospitalization, Other)
  Sender: FDA-Public Use
  Company Number: JP-AMGEN-JPNSP2020177360

PATIENT
  Age: 86 Year
  Sex: Female
  Weight: 44 kg

DRUGS (10)
  1. MUCOSTA [Concomitant]
     Active Substance: REBAMIPIDE
     Indication: SPINAL OSTEOARTHRITIS
     Dosage: 100 MILLIGRAM, TID
     Dates: start: 20200117, end: 20201030
  2. EDIROL [Concomitant]
     Active Substance: ELDECALCITOL
     Indication: OSTEOPOROSIS
     Dosage: 0.75 MICROGRAM, QD
     Dates: start: 20190823, end: 20201030
  3. MAGMITT [Concomitant]
     Active Substance: MAGNESIUM OXIDE
     Indication: CONSTIPATION
     Dosage: 330 MILLIGRAM, TID
     Dates: start: 20080227, end: 20200807
  4. EVENITY [Suspect]
     Active Substance: ROMOSOZUMAB-AQQG
     Indication: OSTEOPOROSIS
     Dosage: 210 MILLIGRAM
     Route: 058
     Dates: start: 20190920, end: 20200924
  5. LOXONIN [Concomitant]
     Active Substance: LOXOPROFEN SODIUM
     Indication: SPINAL OSTEOARTHRITIS
     Dosage: 60 MILLIGRAM, TID
     Dates: start: 20200117, end: 20201030
  6. MUCOSTA [Concomitant]
     Active Substance: REBAMIPIDE
     Indication: OSTEOARTHRITIS
  7. AIMIX [Concomitant]
     Active Substance: AMLODIPINE BESYLATE\IRBESARTAN
     Dosage: 1 TABLET, QD
     Dates: start: 20170512, end: 20200807
  8. LOXONIN [Concomitant]
     Active Substance: LOXOPROFEN SODIUM
     Indication: OSTEOARTHRITIS
  9. XYZAL [Concomitant]
     Active Substance: LEVOCETIRIZINE DIHYDROCHLORIDE
     Dosage: UNK
  10. LYRICA [Concomitant]
     Active Substance: PREGABALIN
     Dosage: 25 MILLIGRAM, BID
     Dates: start: 20200924, end: 20201030

REACTIONS (1)
  - Subarachnoid haemorrhage [Fatal]

NARRATIVE: CASE EVENT DATE: 20201030
